FAERS Safety Report 9807767 (Version 1)
Quarter: 2014Q1

REPORT INFORMATION
  Report Type: Report from Study
  Country: CA (occurrence: CA)
  Receive Date: 20140110
  Receipt Date: 20140110
  Transmission Date: 20141002
  Serious: Yes (Other)
  Sender: FDA-Public Use
  Company Number: CA-JNJFOC-20140101927

PATIENT
  Age: 41 Year
  Sex: Male
  Weight: 125 kg

DRUGS (3)
  1. REMICADE [Suspect]
     Indication: COLITIS ULCERATIVE
     Route: 042
     Dates: start: 201208
  2. ASACOL [Concomitant]
     Dosage: 2 TABLETS
     Route: 065
  3. IMURAN [Concomitant]
     Dosage: 4.5 TABLETS
     Route: 065

REACTIONS (2)
  - Nephrolithiasis [Recovered/Resolved]
  - Dehydration [Unknown]
